FAERS Safety Report 9713422 (Version 1)
Quarter: 2013Q4

REPORT INFORMATION
  Report Type: Spontaneous
  Country: US (occurrence: US)
  Receive Date: 20131126
  Receipt Date: 20131126
  Transmission Date: 20140711
  Serious: Yes (Other)
  Sender: FDA-Public Use
  Company Number: US-PFIZER INC-2013333113

PATIENT
  Sex: Female

DRUGS (2)
  1. CELEBREX [Suspect]
     Dosage: UNK
     Dates: start: 201310
  2. TORSEMIDE [Interacting]
     Indication: HYPERTENSION
     Dosage: 20 MG, UNK

REACTIONS (10)
  - Neoplasm malignant [Unknown]
  - Swelling [Unknown]
  - Oedema peripheral [Unknown]
  - Drug interaction [Unknown]
  - Drug ineffective [Unknown]
  - Constipation [Unknown]
  - Asthma [Unknown]
  - Dyspnoea [Unknown]
  - Malaise [Unknown]
  - Arthritis [Unknown]
